FAERS Safety Report 8481022-0 (Version None)
Quarter: 2012Q3

REPORT INFORMATION
  Report Type: 
  Country: None (occurrence: None)
  Receive Date: 20120702
  Receipt Date: 20120619
  Transmission Date: 20120928
  Serious: Yes (Hospitalization)
  Sender: FDA-Public Use
  Company Number: US-JNJFOC-20120308293

PATIENT
  Sex: Male
  Weight: 88 kg

DRUGS (8)
  1. NIFEDIPINE [Concomitant]
     Route: 065
  2. AMLODIPINE [Concomitant]
     Route: 065
  3. CARVEDILOL [Concomitant]
     Route: 065
  4. CALCITRIOL [Concomitant]
     Route: 065
  5. ZYTIGA [Suspect]
     Indication: PROSTATE CANCER METASTATIC
     Route: 048
     Dates: start: 20110801, end: 20120201
  6. GLIPIZIDE [Concomitant]
     Route: 065
  7. PREDNISONE TAB [Concomitant]
     Route: 065
  8. HYDRALAZINE HYDROCHLORIDE [Concomitant]
     Route: 065

REACTIONS (2)
  - DRUG DOSE OMISSION [None]
  - GASTRIC DISORDER [None]
